FAERS Safety Report 8923944 (Version 1)
Quarter: 2012Q4

REPORT INFORMATION
  Report Type: Spontaneous
  Country: US (occurrence: None)
  Receive Date: 20121121
  Receipt Date: 20121121
  Transmission Date: 20130627
  Serious: Yes (Hospitalization)
  Sender: FDA-Public Use
  Company Number: None

PATIENT
  Age: 33 Year
  Sex: Male
  Weight: 103.87 kg

DRUGS (4)
  1. LURASIDONE [Suspect]
     Indication: SCHIZOPHRENIA
     Dosage: 40 mg PO daily
     Route: 048
     Dates: start: 201205
  2. XANAX [Concomitant]
  3. TRAZADONE [Concomitant]
  4. COGENTIN [Concomitant]

REACTIONS (3)
  - Depression [None]
  - Hallucination, auditory [None]
  - Family stress [None]
